FAERS Safety Report 8987231 (Version 1)
Quarter: 2012Q4

REPORT INFORMATION
  Report Type: 
  Country: US (occurrence: US)
  Receive Date: 20121226
  Receipt Date: 20121226
  Transmission Date: 20130627
  Serious: Yes (Hospitalization, Other)
  Sender: FDA-Public Use
  Company Number: US-AMGEN-US049108

PATIENT
  Age: 45 Year
  Sex: Female

DRUGS (3)
  1. ENBREL [Suspect]
     Indication: RHEUMATOID ARTHRITIS
     Dosage: 50 mg, qwk
     Dates: start: 19990401, end: 20121207
  2. METHOTREXATE [Concomitant]
     Dosage: UNK UNK, UNK
     Dates: start: 200009
  3. HYDROXYCHLOROQUINE PHOSPHATE [Concomitant]
     Dosage: UNK UNK, UNK
     Dates: start: 199801

REACTIONS (34)
  - Mastoiditis [Recovered/Resolved]
  - Procedural haemorrhage [Recovered/Resolved]
  - Lung infiltration [Recovered/Resolved]
  - Dilatation ventricular [Recovered/Resolved]
  - Heart rate irregular [Recovered/Resolved]
  - Cardiomyopathy [Recovered/Resolved]
  - Cardiac stress test abnormal [Recovered/Resolved]
  - Fall [Unknown]
  - Tibia fracture [Recovered/Resolved]
  - Hand fracture [Recovered/Resolved]
  - Ankle fracture [Recovered/Resolved]
  - Bone marrow oedema [Recovered/Resolved]
  - Impaired healing [Recovered/Resolved]
  - Blood cholesterol increased [Recovered/Resolved]
  - Cerumen impaction [Recovered/Resolved]
  - Ear discomfort [Recovered/Resolved]
  - Road traffic accident [Unknown]
  - Joint dislocation [Recovered/Resolved]
  - Joint injury [Not Recovered/Not Resolved]
  - Joint destruction [Not Recovered/Not Resolved]
  - Nausea [Recovered/Resolved]
  - Hyperhidrosis [Recovered/Resolved]
  - Pyrexia [Recovered/Resolved]
  - Pain [Recovered/Resolved]
  - Arthralgia [Recovered/Resolved]
  - Myalgia [Recovered/Resolved]
  - Therapeutic response decreased [Unknown]
  - Neuropathy peripheral [Unknown]
  - Ear infection [Not Recovered/Not Resolved]
  - Sinusitis [Not Recovered/Not Resolved]
  - Insomnia [Not Recovered/Not Resolved]
  - Headache [Not Recovered/Not Resolved]
  - Respiratory tract congestion [Not Recovered/Not Resolved]
  - Ear pain [Not Recovered/Not Resolved]
